FAERS Safety Report 9950044 (Version 1)
Quarter: 2014Q1

REPORT INFORMATION
  Report Type: Report from Study
  Country: US (occurrence: US)
  Receive Date: 20140304
  Receipt Date: 20140304
  Transmission Date: 20141002
  Serious: No
  Sender: FDA-Public Use
  Company Number: US-ABBVIE-13P-163-1069528-00

PATIENT
  Sex: Female

DRUGS (2)
  1. HUMIRA [Suspect]
     Indication: RHEUMATOID ARTHRITIS
     Dates: start: 2012
  2. HUMIRA [Suspect]
     Dates: start: 20130214, end: 20130317

REACTIONS (4)
  - Pruritus [Unknown]
  - Joint swelling [Unknown]
  - Urticaria [Unknown]
  - Skin exfoliation [Unknown]
